FAERS Safety Report 4409925-4 (Version None)
Quarter: 2004Q3

REPORT INFORMATION
  Report Type: 
  Country: None (occurrence: None)
  Receive Date: 20040728
  Receipt Date: 20040728
  Transmission Date: 20050211
  Serious: No
  Sender: FDA-Public Use
  Company Number: None

PATIENT

DRUGS (2)
  1. ANZEMET [Suspect]
     Dosage: 12.5 MG/0.625 MG INJECTABLE
  2. HEPARIN [Suspect]
     Dosage: 5000 UNITS/ 0.5 ML

REACTIONS (1)
  - MEDICATION ERROR [None]
